FAERS Safety Report 9116908 (Version 1)
Quarter: 2013Q1

REPORT INFORMATION
  Report Type: Spontaneous
  Country: US (occurrence: US)
  Receive Date: 20130225
  Receipt Date: 20130225
  Transmission Date: 20140127
  Serious: No
  Sender: FDA-Public Use
  Company Number: US-BAYER-2013-012036

PATIENT
  Age: 56 Year
  Sex: Male

DRUGS (2)
  1. GADAVIST [Suspect]
     Indication: NUCLEAR MAGNETIC RESONANCE IMAGING
     Dosage: 5 ML, UNK
     Dates: start: 20130129, end: 20130129
  2. GADAVIST [Suspect]
     Indication: MIGRAINE

REACTIONS (2)
  - Nausea [None]
  - Vomiting [None]
